FAERS Safety Report 20230980 (Version 1)
Quarter: 2021Q4

REPORT INFORMATION
  Report Type: Other
  Country: US (occurrence: None)
  Receive Date: 20211227
  Receipt Date: 20211227
  Transmission Date: 20220303
  Serious: Yes (Other)
  Sender: FDA-Public Use
  Company Number: US-ROCHE-2982391

PATIENT
  Sex: Female

DRUGS (15)
  1. XELODA [Suspect]
     Active Substance: CAPECITABINE
     Indication: Breast cancer metastatic
     Dosage: TAKE 3 TABLET(S) BY MOUTH TWICE A DAY FOR 7 DAYS ON, 7 DAYS OFF THEN REPEAT
     Route: 048
  2. XELODA [Suspect]
     Active Substance: CAPECITABINE
     Indication: Breast cancer female
  3. ATENOLOL [Concomitant]
     Active Substance: ATENOLOL
     Dosage: 1/2 25MG ORALLY DAILY
     Route: 048
  4. BREO ELLIPTA [Concomitant]
     Active Substance: FLUTICASONE FUROATE\VILANTEROL TRIFENATATE
     Dosage: 1 PUFF Q DAY
  5. CLARITIN [Concomitant]
     Active Substance: LORATADINE
     Dosage: 1 P O Q DAY
  6. CRESTOR [Concomitant]
     Active Substance: ROSUVASTATIN CALCIUM
     Dosage: 1 P.O.Q DAY
  7. EFFEXOR XR [Concomitant]
     Active Substance: VENLAFAXINE HYDROCHLORIDE
     Dosage: 3 POQ DAY
  8. INCRUSE ELLIPTA [Concomitant]
     Active Substance: UMECLIDINIUM BROMIDE
     Dosage: 1 PUFF Q DAY
  9. POTASSIUM CHLORIDE [Concomitant]
     Active Substance: POTASSIUM CHLORIDE
     Dosage: 10 MEQ PO DAILY
  10. PRILOSEC [Concomitant]
     Active Substance: OMEPRAZOLE MAGNESIUM
     Dosage: 1 CAPSULE DELAYED RELEASE BID
  11. SINGULAIR [Concomitant]
     Active Substance: MONTELUKAST SODIUM
     Dosage: 1 TABLET DAILY
     Route: 048
  12. HYDROCHLOROTHIAZIDE\TRIAMTERENE [Concomitant]
     Active Substance: HYDROCHLOROTHIAZIDE\TRIAMTERENE
     Dosage: 37.5 MG- 25 MG TABLET 1/2 POQ DAY
  13. TYLENOL [Concomitant]
     Active Substance: ACETAMINOPHEN
     Dosage: TABLET ORAL PRN
  14. XANAX [Concomitant]
     Active Substance: ALPRAZOLAM
  15. ZOFRAN [Concomitant]
     Active Substance: ONDANSETRON HYDROCHLORIDE
     Dosage: 1 PO THREE TIMES A DAY PM

REACTIONS (1)
  - Diabetes mellitus [Unknown]
